FAERS Safety Report 20532009 (Version 1)
Quarter: 2022Q1

REPORT INFORMATION
  Report Type: Spontaneous
  Country: CN (occurrence: None)
  Receive Date: 20220301
  Receipt Date: 20220301
  Transmission Date: 20220423
  Serious: Yes (Hospitalization)
  Sender: FDA-Public Use
  Company Number: 2022A082740

PATIENT
  Age: 30 Year
  Sex: Male

DRUGS (2)
  1. DAPAGLIFLOZIN [Suspect]
     Active Substance: DAPAGLIFLOZIN
     Indication: Diabetic neuropathy
     Route: 048
     Dates: start: 20220112, end: 20220114
  2. ARCOXIA [Suspect]
     Active Substance: ETORICOXIB
     Indication: Diabetic neuropathy
     Route: 048
     Dates: start: 20220112, end: 20220116

REACTIONS (1)
  - Erythema multiforme [Recovering/Resolving]

NARRATIVE: CASE EVENT DATE: 20220114
